FAERS Safety Report 8334116 (Version 5)
Quarter: 2014Q3

REPORT INFORMATION
  Report Type: Spontaneous
  Country: US (occurrence: US)
  Receive Date: 20111130
  Receipt Date: 20140723
  Transmission Date: 20150326
  Serious: Yes (Death, Hospitalization, Disabling, Other)
  Sender: FDA-Public Use
  Company Number: US201106004355

PATIENT
  Age: 64 Year
  Sex: Male
  Weight: 146.93 kg

DRUGS (2)
  1. COUMADIN [Suspect]
     Active Substance: WARFARIN SODIUM
  2. BYETTA [Suspect]
     Active Substance: EXENATIDE

REACTIONS (7)
  - Pancreatitis [Unknown]
  - Jaundice [Unknown]
  - Toxicity to various agents [Unknown]
  - Pancreatic carcinoma metastatic [Unknown]
  - Cellulitis [Unknown]
  - Renal failure [Fatal]
  - Weight decreased [Unknown]
